FAERS Safety Report 17727629 (Version 1)
Quarter: 2020Q2

REPORT INFORMATION
  Report Type: Spontaneous
  Country: US (occurrence: US)
  Receive Date: 20200430
  Receipt Date: 20200430
  Transmission Date: 20200714
  Serious: Yes (Life-Threatening, Hospitalization, Other)
  Sender: FDA-Public Use
  Company Number: US-CIPLA LTD.-2020US03069

PATIENT

DRUGS (3)
  1. LOSARTAN. [Suspect]
     Active Substance: LOSARTAN
     Dosage: UNK, OVER 100 PILLS, A MIX OF EXTENDED RELEASE METOPROLOL 50 MG, DULOXETINE 60 MG, LOSARTAN 100 MG
     Route: 065
  2. DULOXETINE. [Suspect]
     Active Substance: DULOXETINE
     Dosage: UNK, OVER 100 PILLS, A MIX OF EXTENDED RELEASE METOPROLOL 50 MG, DULOXETINE 60 MG, LOSARTAN 100 MG
     Route: 065
  3. METOPROLOL. [Suspect]
     Active Substance: METOPROLOL
     Dosage: UNK, OVER 100 PILLS, A MIX OF EXTENDED RELEASE METOPROLOL 50 MG, DULOXETINE 60 MG, LOSARTAN 100 MG
     Route: 065

REACTIONS (5)
  - Hypotension [Unknown]
  - Hypothermia [Unknown]
  - Intentional overdose [Unknown]
  - Bradycardia [Unknown]
  - Depressed level of consciousness [Unknown]
